FAERS Safety Report 7574941-0 (Version None)
Quarter: 2011Q2

REPORT INFORMATION
  Report Type: 
  Country: None (occurrence: None)
  Receive Date: 20110627
  Receipt Date: 20110614
  Transmission Date: 20111010
  Serious: Yes (Hospitalization)
  Sender: FDA-Public Use
  Company Number: JP-ELI_LILLY_AND_COMPANY-JP201106000468

PATIENT
  Age: 85 Year
  Sex: Female

DRUGS (3)
  1. EVISTA [Suspect]
     Dosage: 60 MG, QD
     Route: 048
  2. ANTIHYPERTENSIVES [Concomitant]
     Indication: HYPERTENSION
     Dosage: UNK
     Route: 048
  3. EVISTA [Suspect]
     Indication: OSTEOPOROSIS
     Dosage: 60 MG, QD
     Route: 048

REACTIONS (2)
  - ABNORMAL FAECES [None]
  - FEMORAL NECK FRACTURE [None]
